FAERS Safety Report 8198065-7 (Version None)
Quarter: 2012Q1

REPORT INFORMATION
  Report Type: 
  Country: None (occurrence: None)
  Receive Date: 20120309
  Receipt Date: 20120217
  Transmission Date: 20120608
  Serious: No
  Sender: FDA-Public Use
  Company Number: US-AMGEN-USASP2012006660

PATIENT
  Age: 67 Year
  Sex: Male

DRUGS (10)
  1. XGEVA [Suspect]
     Indication: METASTASES TO BONE
     Dates: start: 20110101
  2. CALCIUM [Concomitant]
  3. TRELSTAR [Suspect]
  4. FISH OIL [Concomitant]
  5. TRELSTAR [Concomitant]
     Dosage: UNK
  6. LISINOPRIL COMBINO [Concomitant]
     Dosage: UNK
  7. VITAMIN D [Concomitant]
  8. OMEPRAZOLE [Concomitant]
     Dosage: UNK
  9. ZOLPIDEM [Concomitant]
  10. ASPIRIN [Concomitant]

REACTIONS (4)
  - INSOMNIA [None]
  - BACK PAIN [None]
  - INITIAL INSOMNIA [None]
  - HOT FLUSH [None]
